FAERS Safety Report 10094318 (Version 1)
Quarter: 2014Q2

REPORT INFORMATION
  Report Type: Spontaneous
  Country: US (occurrence: US)
  Receive Date: 20140422
  Receipt Date: 20140422
  Transmission Date: 20141212
  Serious: No
  Sender: FDA-Public Use
  Company Number: US-009507513-1404USA004563

PATIENT
  Age: 6 Year
  Sex: Female

DRUGS (1)
  1. CLARITIN ORAL SOLUTION [Suspect]
     Indication: HYPERSENSITIVITY
     Dosage: 15 MG, UNKNOWN
     Route: 048

REACTIONS (1)
  - Accidental overdose [Unknown]
